FAERS Safety Report 11203808 (Version 3)
Quarter: 2015Q4

REPORT INFORMATION
  Report Type: Spontaneous
  Country: US (occurrence: US)
  Receive Date: 20150619
  Receipt Date: 20151106
  Transmission Date: 20160304
  Serious: Yes (Hospitalization, Disabling, Other)
  Sender: FDA-Public Use
  Company Number: US-009507513-1203USA02928

PATIENT
  Sex: Female
  Weight: 80.9 kg

DRUGS (5)
  1. FOSAMAX [Suspect]
     Active Substance: ALENDRONATE SODIUM
     Indication: OSTEOPENIA
     Dosage: 70 MG, UNK
     Route: 048
     Dates: start: 20010316, end: 20090228
  2. FOSAMAX [Suspect]
     Active Substance: ALENDRONATE SODIUM
     Indication: BONE DENSITY DECREASED
     Route: 048
  3. FOSAMAX [Suspect]
     Active Substance: ALENDRONATE SODIUM
     Indication: OSTEOPENIA
  4. FOSAMAX [Suspect]
     Active Substance: ALENDRONATE SODIUM
     Indication: BONE DENSITY DECREASED
     Dosage: 5 MG, UNK
     Route: 048
     Dates: start: 20000602, end: 20001120
  5. ALENDRONATE SODIUM. [Suspect]
     Active Substance: ALENDRONATE SODIUM
     Indication: BONE DENSITY DECREASED
     Dosage: 70 MG, UNK
     Route: 048
     Dates: start: 20080216, end: 20090126

REACTIONS (30)
  - Fall [Unknown]
  - Umbilical hernia repair [Unknown]
  - Dry skin [Unknown]
  - Hypercholesterolaemia [Unknown]
  - Nail dystrophy [Unknown]
  - Nephrolithiasis [Unknown]
  - Arthritis [Unknown]
  - Hypertriglyceridaemia [Unknown]
  - Nail ridging [Unknown]
  - Pneumonia [Unknown]
  - Hypertension [Unknown]
  - Osteoporosis [Unknown]
  - Skin lesion [Unknown]
  - Bone disorder [Unknown]
  - Femur fracture [Unknown]
  - Lower limb fracture [Unknown]
  - Pulmonary granuloma [Unknown]
  - Presyncope [Unknown]
  - Bundle branch block right [Unknown]
  - Femur fracture [Unknown]
  - Pubis fracture [Unknown]
  - Atrioventricular block first degree [Unknown]
  - Diabetes mellitus [Unknown]
  - Umbilical hernia [Unknown]
  - Ligament sprain [Unknown]
  - Bursitis [Unknown]
  - Presyncope [Unknown]
  - Onycholysis [Unknown]
  - Orthostatic hypotension [Unknown]
  - Dehydration [Unknown]

NARRATIVE: CASE EVENT DATE: 200007
